FAERS Safety Report 14583990 (Version 1)
Quarter: 2018Q1

REPORT INFORMATION
  Report Type: Spontaneous
  Country: SE (occurrence: SE)
  Receive Date: 20180228
  Receipt Date: 20180228
  Transmission Date: 20180509
  Serious: Yes (Other)
  Sender: FDA-Public Use
  Company Number: SE-TEVA-2018-SE-861625

PATIENT
  Age: 50 Year
  Sex: Female

DRUGS (6)
  1. PROPAVAN [Concomitant]
     Active Substance: PROPIOMAZINE
  2. IMOVANE [Concomitant]
     Active Substance: ZOPICLONE
  3. FLUOXETINE [Suspect]
     Active Substance: FLUOXETINE HYDROCHLORIDE
     Indication: DEPRESSION
     Route: 048
     Dates: start: 20170313
  4. EXLUTENA [Concomitant]
  5. ATARAX [Concomitant]
     Active Substance: HYDROXYZINE HYDROCHLORIDE
  6. SEEBRI BREEZHALER [Concomitant]
     Active Substance: GLYCOPYRROLATE

REACTIONS (1)
  - Urinary retention [Not Recovered/Not Resolved]

NARRATIVE: CASE EVENT DATE: 2017
